FAERS Safety Report 9377588 (Version 1)
Quarter: 2013Q2

REPORT INFORMATION
  Report Type: Spontaneous
  Country: GB (occurrence: None)
  Receive Date: 20130625
  Receipt Date: 20130625
  Transmission Date: 20140414
  Serious: Yes (Other)
  Sender: FDA-Public Use
  Company Number: AUR-APL-2013-04949

PATIENT
  Age: 26 Year
  Sex: Female

DRUGS (30)
  1. NAPROXEN (NAPROXEN) [Suspect]
     Indication: RHEUMATOID ARTHRITIS
  2. NAPROXEN (NAPROXEN) [Suspect]
     Indication: PAIN
  3. NAPROXEN (NAPROXEN) [Suspect]
     Indication: HYPERMOBILITY SYNDROME
  4. NAPROXEN (NAPROXEN) [Suspect]
     Indication: OSTEOARTHRITIS
  5. NAPROXEN (NAPROXEN) [Suspect]
     Indication: OSTEOPOROSIS
  6. NAPROXEN (NAPROXEN) [Suspect]
     Indication: MYALGIA
  7. TRAMADOL (TRAMADOL) [Suspect]
     Indication: RHEUMATOID ARTHRITIS
  8. TRAMADOL (TRAMADOL) [Suspect]
     Indication: PAIN
  9. TRAMADOL (TRAMADOL) [Suspect]
     Indication: HYPERMOBILITY SYNDROME
  10. TRAMADOL (TRAMADOL) [Suspect]
     Indication: OSTEOARTHRITIS
  11. TRAMADOL (TRAMADOL) [Suspect]
     Indication: OSTEOPOROSIS
  12. TRAMADOL (TRAMADOL) [Suspect]
     Indication: MYALGIA
  13. CO-CODAMOL (PANADEINE CO) [Suspect]
     Indication: RHEUMATOID ARTHRITIS
  14. CO-CODAMOL (PANADEINE CO) [Suspect]
     Indication: PAIN
  15. CO-CODAMOL (PANADEINE CO) [Suspect]
     Indication: HYPERMOBILITY SYNDROME
  16. CO-CODAMOL (PANADEINE CO) [Suspect]
     Indication: OSTEOARTHRITIS
  17. CO-CODAMOL (PANADEINE CO) [Suspect]
     Indication: OSTEOPOROSIS
  18. CO-CODAMOL (PANADEINE CO) [Suspect]
     Indication: MYALGIA
  19. DICLOFENAC (DICLOFENAC) [Suspect]
     Indication: RHEUMATOID ARTHRITIS
  20. DICLOFENAC (DICLOFENAC) [Suspect]
     Indication: PAIN
  21. DICLOFENAC (DICLOFENAC) [Suspect]
     Indication: HYPERMOBILITY SYNDROME
  22. DICLOFENAC (DICLOFENAC) [Suspect]
     Indication: OSTEOARTHRITIS
  23. DICLOFENAC (DICLOFENAC) [Suspect]
     Indication: OSTEOPOROSIS
  24. DICLOFENAC (DICLOFENAC) [Suspect]
     Indication: MYALGIA
  25. LEFLUNOMIDE [Suspect]
     Indication: RHEUMATOID ARTHRITIS
  26. LEFLUNOMIDE [Suspect]
     Indication: PAIN
  27. LEFLUNOMIDE [Suspect]
     Indication: HYPERMOBILITY SYNDROME
  28. LEFLUNOMIDE [Suspect]
     Indication: OSTEOARTHRITIS
  29. LEFLUNOMIDE [Suspect]
     Indication: OSTEOPOROSIS
  30. LEFLUNOMIDE [Suspect]
     Indication: MYALGIA

REACTIONS (4)
  - Inadequate analgesia [None]
  - Mobility decreased [None]
  - Quality of life decreased [None]
  - Suicidal ideation [None]
